FAERS Safety Report 14250427 (Version 1)
Quarter: 2017Q4

REPORT INFORMATION
  Report Type: Spontaneous
  Country: US (occurrence: None)
  Receive Date: 20171205
  Receipt Date: 20171205
  Transmission Date: 20180321
  Serious: Yes (Death, Life-Threatening)
  Sender: FDA-Public Use
  Company Number: None

PATIENT
  Sex: Female
  Weight: 52.16 kg

DRUGS (9)
  1. TOPAMAX [Concomitant]
     Active Substance: TOPIRAMATE
  2. CLONAPIN [Concomitant]
     Active Substance: CLONAZEPAM
  3. ARISTADA [Concomitant]
     Active Substance: ARIPIPRAZOLE LAUROXIL
  4. NAPROXEN. [Concomitant]
     Active Substance: NAPROXEN
  5. MIRALAX [Concomitant]
     Active Substance: POLYETHYLENE GLYCOL 3350
  6. CONCERTA [Concomitant]
     Active Substance: METHYLPHENIDATE HYDROCHLORIDE
  7. ABILIFY [Suspect]
     Active Substance: ARIPIPRAZOLE
  8. FERROUS SULFATE. [Concomitant]
     Active Substance: FERROUS SULFATE
  9. MULTIVITAMIN [Concomitant]
     Active Substance: VITAMINS

REACTIONS (3)
  - Apparent death [None]
  - Dysphagia [None]
  - Throat irritation [None]

NARRATIVE: CASE EVENT DATE: 20150808
